FAERS Safety Report 21808760 (Version 2)
Quarter: 2023Q1

REPORT INFORMATION
  Report Type: Report from Study
  Country: AR (occurrence: None)
  Receive Date: 20230103
  Receipt Date: 20230131
  Transmission Date: 20230417
  Serious: Yes (Hospitalization)
  Sender: FDA-Public Use
  Company Number: AR-ROCHE-3204702

PATIENT
  Age: 76 Year
  Sex: Female
  Weight: 84 kg

DRUGS (24)
  1. RITUXIMAB [Suspect]
     Active Substance: RITUXIMAB
     Indication: B-cell lymphoma
     Dosage: DOSE LAST STUDY DRUG ADMIN PRIOR AE/SAE: 724 MG, START DATE OF MOST RECENT DOSE OF STUDY DRUG PRIOR
     Route: 041
     Dates: start: 20220803
  2. GEMCITABINE [Suspect]
     Active Substance: GEMCITABINE
     Indication: B-cell lymphoma
     Dosage: DOSE LAST STUDY DRUG ADMIN PRIOR AE/SAE : 1930 MG, START DATE OF MOST RECENT DOSE OF STUDY DRUG PRIO
     Route: 042
     Dates: start: 20220803
  3. OXALIPLATIN [Suspect]
     Active Substance: OXALIPLATIN
     Indication: B-cell lymphoma
     Dosage: DOSE LAST STUDY DRUG ADMIN PRIOR AE/SAE WAS 193 MG, START DATE OF MOST RECENT DOSE OF STUDY DRUG PRI
     Route: 042
  4. LEVOTHYROXINE [Concomitant]
     Active Substance: LEVOTHYROXINE
     Indication: Hypothyroidism
     Dates: start: 1992
  5. RAQUIFEROL [Concomitant]
     Indication: Osteoporosis prophylaxis
     Dosage: VITAMIN D (RAQUIFEROL), START DATE: 01-UNK-2012
  6. CALCIMAX D3 [Concomitant]
     Indication: Osteoporosis prophylaxis
     Dosage: VITAMIN D 3 CALCIMAX, 01-UNK-2000/
  7. CELECOXIB [Concomitant]
     Active Substance: CELECOXIB
     Dosage: ANTI INFLAMMATORY
  8. ROSUVASTATIN [Concomitant]
     Active Substance: ROSUVASTATIN
     Dosage: SECONDARY PREVENTION, 01-UNK-2010/
  9. OMEPRAZOLE [Concomitant]
     Active Substance: OMEPRAZOLE
     Indication: Gastritis prophylaxis
     Dates: start: 20220804
  10. FLUCONAZOLE [Concomitant]
     Active Substance: FLUCONAZOLE
     Indication: Infection prophylaxis
     Dates: start: 20220804
  11. APREPITANT [Concomitant]
     Active Substance: APREPITANT
     Indication: Prophylaxis of nausea and vomiting
     Dates: start: 20220804
  12. ONDANSETRON [Concomitant]
     Active Substance: ONDANSETRON
     Indication: Prophylaxis of nausea and vomiting
     Dates: start: 20220804
  13. CIPROFLOXACIN [Concomitant]
     Active Substance: CIPROFLOXACIN
     Indication: Antibiotic therapy
     Dates: start: 20220822
  14. MINOCICLINA [Concomitant]
     Indication: Antibiotic therapy
     Dates: start: 20220822
  15. ENOXAPARIN [Concomitant]
     Active Substance: ENOXAPARIN
     Indication: Thrombophlebitis
     Dates: start: 20220822
  16. CIPROFLOXACIN [Concomitant]
     Active Substance: CIPROFLOXACIN
     Indication: Urinary tract infection
     Dates: start: 20221019, end: 20221026
  17. HEPARIN [Concomitant]
     Active Substance: HEPARIN SODIUM
     Indication: Thrombophlebitis
     Dates: start: 20221003, end: 20221005
  18. RIVAROXABAN [Concomitant]
     Active Substance: RIVAROXABAN
     Indication: Thrombophlebitis
     Dates: start: 20221006, end: 20221010
  19. DAPTOMYCIN [Concomitant]
     Active Substance: DAPTOMYCIN
     Indication: Thrombophlebitis
     Dates: start: 20220912, end: 20221019
  20. HYDROCORTISONE [Concomitant]
     Active Substance: HYDROCORTISONE
     Indication: Infusion related reaction
     Route: 042
     Dates: start: 20220927, end: 20220927
  21. FUROSEMIDE [Concomitant]
     Active Substance: FUROSEMIDE
     Indication: Infusion related reaction
     Route: 042
     Dates: start: 20220927, end: 20220927
  22. DIPHENHYDRAMINE [Concomitant]
     Active Substance: DIPHENHYDRAMINE
     Indication: Infusion related reaction
     Route: 042
     Dates: start: 20220927, end: 20220927
  23. FILGRASTIM [Concomitant]
     Active Substance: FILGRASTIM
     Indication: Neutropenia
     Route: 058
     Dates: start: 20220810, end: 20221123
  24. FILGRASTIM [Concomitant]
     Active Substance: FILGRASTIM
     Dates: start: 20220920, end: 20220926

REACTIONS (2)
  - Hypertension [Recovered/Resolved]
  - Sinus tachycardia [Recovered/Resolved]

NARRATIVE: CASE EVENT DATE: 20221019
